FAERS Safety Report 6216955-9 (Version None)
Quarter: 2009Q2

REPORT INFORMATION
  Report Type: 
  Country: None (occurrence: None)
  Receive Date: 20090604
  Receipt Date: 20090528
  Transmission Date: 20091009
  Serious: Yes (Hospitalization)
  Sender: FDA-Public Use
  Company Number: 283373

PATIENT
  Age: 86 Year
  Sex: Male
  Weight: 67 kg

DRUGS (13)
  1. VANCOMYCIN HYDROCHLORIDE (STERILE), USP 500MG GLASS FT VIAL [Suspect]
     Indication: CELLULITIS
     Dosage: 1 DAY, INTRAVENOUS
     Route: 042
     Dates: start: 20090519, end: 20090519
  2. HEPARIN [Concomitant]
  3. EPOGEN [Concomitant]
  4. ZEMPLAR [Concomitant]
  5. GENTAMICIN [Concomitant]
  6. ASPIRIN [Concomitant]
  7. FLOMAX [Concomitant]
  8. SODIUM BICARBONATE [Concomitant]
  9. VITAMIN C /0000801/ [Concomitant]
  10. ZYLOPRIM [Concomitant]
  11. CALCIUM CITRATE W/VITAMIN D NOS [Concomitant]
  12. CARAFATE [Concomitant]
  13. ZOFRAN [Concomitant]

REACTIONS (6)
  - CYANOSIS [None]
  - DIZZINESS [None]
  - DRUG HYPERSENSITIVITY [None]
  - DYSPNOEA [None]
  - LETHARGY [None]
  - VOMITING [None]
